FAERS Safety Report 21160908 (Version 3)
Quarter: 2022Q3

REPORT INFORMATION
  Report Type: Spontaneous
  Country: JP (occurrence: JP)
  Receive Date: 20220802
  Receipt Date: 20220812
  Transmission Date: 20221027
  Serious: Yes (Other)
  Sender: FDA-Public Use
  Company Number: JP-PFIZER INC-PV202200032132

PATIENT
  Age: 70 Year
  Sex: Male
  Weight: 61 kg

DRUGS (3)
  1. GEMCITABINE HYDROCHLORIDE [Suspect]
     Active Substance: GEMCITABINE HYDROCHLORIDE
     Indication: Pancreatic carcinoma
     Dosage: STARTING DOSE: 1,280 MG/BODY (20% REDUCED)
  2. PACLITAXEL [Suspect]
     Active Substance: PACLITAXEL
     Indication: Pancreatic carcinoma
     Dosage: STARTING DOSE: 160 MG/BODY (20% REDUCED)
  3. AMIODARONE [Concomitant]
     Active Substance: AMIODARONE
     Dosage: 400-150 MG/DAY

REACTIONS (2)
  - Pneumomediastinum [Recovered/Resolved with Sequelae]
  - Interstitial lung disease [Recovered/Resolved with Sequelae]
